FAERS Safety Report 16175741 (Version 3)
Quarter: 2019Q2

REPORT INFORMATION
  Report Type: Spontaneous
  Country: US (occurrence: US)
  Receive Date: 20190409
  Receipt Date: 20190515
  Transmission Date: 20190711
  Serious: Yes (Other)
  Sender: FDA-Public Use
  Company Number: US-PFIZER INC-2019141610

PATIENT
  Sex: Female

DRUGS (2)
  1. CARDURA [Suspect]
     Active Substance: DOXAZOSIN MESYLATE
     Dosage: 20 MG, DAILY
  2. CARDURA [Suspect]
     Active Substance: DOXAZOSIN MESYLATE
     Dosage: 40 MG, DAILY

REACTIONS (5)
  - Mobility decreased [Unknown]
  - Headache [Unknown]
  - Overdose [Unknown]
  - Hypertension [Unknown]
  - Peripheral swelling [Unknown]
